FAERS Safety Report 22239350 (Version 2)
Quarter: 2023Q2

REPORT INFORMATION
  Report Type: Spontaneous
  Country: US (occurrence: None)
  Receive Date: 20230421
  Receipt Date: 20230523
  Transmission Date: 20230722
  Serious: Yes (Other)
  Sender: FDA-Public Use
  Company Number: US-FARMAPROD-202304-1004

PATIENT
  Age: 51 Year
  Sex: Female

DRUGS (6)
  1. OXERVATE [Suspect]
     Active Substance: CENEGERMIN-BKBJ
     Indication: Neurotrophic keratopathy
     Route: 047
     Dates: start: 20230124
  2. OPTASE [Concomitant]
     Active Substance: BALSAM PERU\CASTOR OIL\TRYPSIN
  3. LORAZEPAM [Concomitant]
     Active Substance: LORAZEPAM
  4. RETAINE MGD [Concomitant]
     Active Substance: LIGHT MINERAL OIL\MINERAL OIL
     Dosage: 0.5%-0.5%
  5. UPNEEQ [Concomitant]
     Active Substance: OXYMETAZOLINE HYDROCHLORIDE
  6. CEQUA [Concomitant]
     Active Substance: CYCLOSPORINE

REACTIONS (1)
  - Blepharospasm [Recovered/Resolved]

NARRATIVE: CASE EVENT DATE: 20230317
